FAERS Safety Report 23955684 (Version 1)
Quarter: 2024Q2

REPORT INFORMATION
  Report Type: Spontaneous
  Country: US (occurrence: None)
  Receive Date: 20240607
  Receipt Date: 20240607
  Transmission Date: 20240716
  Serious: Yes (Hospitalization)
  Sender: FDA-Public Use
  Company Number: None

PATIENT
  Sex: Female

DRUGS (2)
  1. AMBRISENTAN [Suspect]
     Active Substance: AMBRISENTAN
     Indication: Pulmonary arterial hypertension
     Dosage: 5MG DAILY PO
     Route: 048
     Dates: start: 201805
  2. DOFETILIDE [Concomitant]
     Active Substance: DOFETILIDE

REACTIONS (3)
  - Dyspnoea [None]
  - Fatigue [None]
  - Heart rate increased [None]
